FAERS Safety Report 14177285 (Version 3)
Quarter: 2017Q4

REPORT INFORMATION
  Report Type: Spontaneous
  Country: US (occurrence: US)
  Receive Date: 20171110
  Receipt Date: 20171212
  Transmission Date: 20180321
  Serious: Yes (Hospitalization, Other)
  Sender: FDA-Public Use
  Company Number: US-SHIRE-US201728607

PATIENT
  Age: 68 Year
  Sex: Male

DRUGS (3)
  1. GAMMAGARD LIQUID [Suspect]
     Active Substance: HUMAN IMMUNOGLOBULIN G
     Indication: THROMBOCYTOPENIA
     Dosage: 5 G, UNK
     Route: 042
     Dates: start: 201701, end: 20171101
  2. GAMMAGARD LIQUID [Suspect]
     Active Substance: HUMAN IMMUNOGLOBULIN G
     Indication: CHRONIC LYMPHOCYTIC LEUKAEMIA
     Dosage: 30 G, UNK
     Route: 042
     Dates: start: 201701, end: 20171101
  3. GAMMAGARD LIQUID [Suspect]
     Active Substance: HUMAN IMMUNOGLOBULIN G
     Indication: OFF LABEL USE
     Dosage: 1 G, UNK
     Route: 042
     Dates: start: 201701, end: 20171101

REACTIONS (5)
  - Abdominal distension [Unknown]
  - Hyperhidrosis [Unknown]
  - Unresponsive to stimuli [Unknown]
  - Off label use [Unknown]
  - Dyspnoea [Unknown]

NARRATIVE: CASE EVENT DATE: 20171101
